FAERS Safety Report 20561390 (Version 1)
Quarter: 2022Q1

REPORT INFORMATION
  Report Type: Spontaneous
  Country: IN (occurrence: IN)
  Receive Date: 20220307
  Receipt Date: 20220307
  Transmission Date: 20220424
  Serious: Yes (Death, Other)
  Sender: FDA-Public Use
  Company Number: IN-AMGEN-INDSP2022036478

PATIENT
  Age: 75 Year
  Sex: Male

DRUGS (12)
  1. FILGRASTIM [Suspect]
     Active Substance: FILGRASTIM
     Indication: Prophylaxis
     Dosage: 300 MICROGRAM
     Route: 058
  2. PEGFILGRASTIM [Suspect]
     Active Substance: PEGFILGRASTIM
     Indication: Prophylaxis
     Dosage: 6 MILLIGRAM
     Route: 058
  3. DOCETAXEL [Suspect]
     Active Substance: DOCETAXEL
     Indication: Prostate cancer metastatic
     Dosage: 45 MICROGRAM/SQ. METER, Q2WK (ADMINISRED 1 HR IV INFUSION FOR 40 CHEMO. CYCLE)
     Route: 042
  4. DOCETAXEL [Suspect]
     Active Substance: DOCETAXEL
     Indication: Hormone-refractory prostate cancer
  5. ZOLEDRONIC ACID [Concomitant]
     Active Substance: ZOLEDRONIC ACID
     Indication: Hormone-refractory prostate cancer
     Dosage: 4 MILLIGRAM, QMO
     Route: 042
  6. ZOLEDRONIC ACID [Concomitant]
     Active Substance: ZOLEDRONIC ACID
     Indication: Prostate cancer metastatic
  7. PREDNISOLONE [Concomitant]
     Active Substance: PREDNISOLONE
     Indication: Hormone-refractory prostate cancer
     Dosage: 5 MILLIGRAM, BID
     Route: 048
  8. PREDNISOLONE [Concomitant]
     Active Substance: PREDNISOLONE
     Indication: Prostate cancer metastatic
  9. DEXAMETHASONE [Concomitant]
     Active Substance: DEXAMETHASONE
     Indication: Hormone-refractory prostate cancer
     Dosage: 12 MILLIGRAM
     Route: 042
  10. DEXAMETHASONE [Concomitant]
     Active Substance: DEXAMETHASONE
     Indication: Prostate cancer metastatic
  11. ONDANSETRON [Concomitant]
     Active Substance: ONDANSETRON
     Dosage: 12 MILLIGRAM
     Route: 042
  12. BICALUTAMIDE [Concomitant]
     Active Substance: BICALUTAMIDE
     Dosage: 50 MILLIGRAM, QD
     Route: 048

REACTIONS (6)
  - Death [Fatal]
  - Hormone-refractory prostate cancer [Unknown]
  - Lymphopenia [Unknown]
  - Hypoglycaemia [Unknown]
  - Prostatic specific antigen decreased [Unknown]
  - Anaemia [Unknown]
